FAERS Safety Report 6678092-9 (Version None)
Quarter: 2010Q2

REPORT INFORMATION
  Report Type: 
  Country: None (occurrence: None)
  Receive Date: 20100409
  Receipt Date: 20100409
  Transmission Date: 20101027
  Serious: Yes (Other)
  Sender: FDA-Public Use
  Company Number: None

PATIENT
  Age: 69 Year
  Sex: Female

DRUGS (3)
  1. THALIDOMIDE [Suspect]
     Indication: MULTIPLE MYELOMA
  2. VELCADE [Suspect]
  3. DEXAMETHASONE [Concomitant]

REACTIONS (2)
  - FATIGUE [None]
  - NEUROPATHY PERIPHERAL [None]
